FAERS Safety Report 16722460 (Version 2)
Quarter: 2020Q4

REPORT INFORMATION
  Report Type: Spontaneous
  Country: US (occurrence: US)
  Receive Date: 20190820
  Receipt Date: 20201230
  Transmission Date: 20210113
  Serious: Yes (Hospitalization, Other)
  Sender: FDA-Public Use
  Company Number: US-BIOMARINAP-US-2019-125275

PATIENT
  Age: 19 Year
  Sex: Male

DRUGS (3)
  1. ALDURAZYME [Suspect]
     Active Substance: LARONIDASE
     Dosage: UNK UNK, QW
     Route: 041
     Dates: start: 20170810
  2. ALDURAZYME [Suspect]
     Active Substance: LARONIDASE
     Dosage: 52.2 MILLIGRAM, QW
     Route: 041
     Dates: end: 20201217
  3. ALDURAZYME [Suspect]
     Active Substance: LARONIDASE
     Indication: MUCOPOLYSACCHARIDOSIS I
     Dosage: 52.2 MILLIGRAM, QW
     Route: 041
     Dates: start: 20151020

REACTIONS (7)
  - Product dose omission issue [Unknown]
  - Fluid retention [Recovered/Resolved]
  - Back pain [Unknown]
  - Gait disturbance [Recovering/Resolving]
  - Bacterial infection [Unknown]
  - Pain [Recovering/Resolving]
  - Central venous catheter removal [Unknown]

NARRATIVE: CASE EVENT DATE: 20190728
